FAERS Safety Report 8073055-3 (Version None)
Quarter: 2012Q1

REPORT INFORMATION
  Report Type: 
  Country: None (occurrence: None)
  Receive Date: 20120126
  Receipt Date: 20120120
  Transmission Date: 20120608
  Serious: Yes (Death)
  Sender: FDA-Public Use
  Company Number: JP-BRISTOL-MYERS SQUIBB COMPANY-16238172

PATIENT
  Age: 62 Year
  Sex: Male

DRUGS (6)
  1. ORENCIA [Suspect]
     Indication: RHEUMATOID ARTHRITIS
     Dosage: ALSO ON 18OCT11,  19OCT11.(2 DOSES)
     Route: 041
     Dates: start: 20111004
  2. PRELONE [Concomitant]
     Dates: start: 20070518
  3. AZULFIDINE [Concomitant]
     Dates: start: 20091207
  4. METHYCOBAL [Concomitant]
     Dates: start: 20100507
  5. RISEDRONATE SODIUM [Concomitant]
     Dates: start: 20080822
  6. CLARITHROMYCIN [Concomitant]
     Dates: start: 20080111

REACTIONS (1)
  - SEPSIS [None]
